FAERS Safety Report 25341683 (Version 5)
Quarter: 2025Q3

REPORT INFORMATION
  Report Type: Spontaneous
  Country: US (occurrence: US)
  Receive Date: 20250521
  Receipt Date: 20250910
  Transmission Date: 20251021
  Serious: No
  Sender: VERTEX
  Company Number: US-VERTEX PHARMACEUTICALS-2025-007877

PATIENT
  Sex: Male

DRUGS (1)
  1. JOURNAVX [Suspect]
     Active Substance: SUZETRIGINE
     Indication: Product used for unknown indication
     Route: 048

REACTIONS (3)
  - Gait inability [Unknown]
  - Pain in extremity [Unknown]
  - Muscle spasms [Not Recovered/Not Resolved]
